FAERS Safety Report 4639682-8 (Version None)
Quarter: 2005Q2

REPORT INFORMATION
  Report Type: 
  Country: None (occurrence: None)
  Receive Date: 20050415
  Receipt Date: 20050406
  Transmission Date: 20051028
  Serious: Yes (Disabling)
  Sender: FDA-Public Use
  Company Number: 05P-168-0296838-00

PATIENT
  Age: 34 Year
  Sex: Male

DRUGS (4)
  1. DIVALPROEX SODIUM [Suspect]
     Indication: PETIT MAL EPILEPSY
     Dosage: SEE IMAGE
     Route: 048
     Dates: end: 20050201
  2. DIVALPROEX SODIUM [Suspect]
     Indication: PETIT MAL EPILEPSY
     Dosage: SEE IMAGE
     Route: 048
     Dates: start: 20050201
  3. LAMOTRIGINE [Concomitant]
  4. CLONAZEPAM [Concomitant]

REACTIONS (5)
  - AZOOSPERMIA [None]
  - FEELING ABNORMAL [None]
  - INSOMNIA [None]
  - RESTLESSNESS [None]
  - TREMOR [None]
